FAERS Safety Report 8077204-2 (Version None)
Quarter: 2012Q1

REPORT INFORMATION
  Report Type: 
  Country: None (occurrence: None)
  Receive Date: 20120127
  Receipt Date: 20120119
  Transmission Date: 20120608
  Serious: Yes (Other)
  Sender: FDA-Public Use
  Company Number: DE-ROCHE-1032131

PATIENT
  Sex: Male

DRUGS (6)
  1. TELBIVUDINE [Suspect]
     Indication: HEPATITIS B
     Route: 048
     Dates: start: 20100824
  2. ISOPTIN [Concomitant]
  3. MABTHERA [Suspect]
     Indication: PRODUCT USED FOR UNKNOWN INDICATION
     Route: 042
     Dates: start: 20100904, end: 20110131
  4. BENDAMUSTINE [Suspect]
     Indication: PRODUCT USED FOR UNKNOWN INDICATION
     Route: 042
     Dates: start: 20100904, end: 20110131
  5. DIGITOXIN TAB [Concomitant]
  6. MARCUMAR [Concomitant]

REACTIONS (1)
  - GAMMA-GLUTAMYLTRANSFERASE INCREASED [None]
